FAERS Safety Report 4442092-X (Version None)
Quarter: 2004Q3

REPORT INFORMATION
  Report Type: 
  Country: None (occurrence: None)
  Receive Date: 20040907
  Receipt Date: 20040830
  Transmission Date: 20050211
  Serious: Yes (Hospitalization)
  Sender: FDA-Public Use
  Company Number: PHBS2004JP11569

PATIENT
  Age: 86 Year
  Sex: Male

DRUGS (5)
  1. DIOVAN [Suspect]
     Indication: CARDIAC FAILURE
     Dosage: 40 MG/DAY
     Route: 048
     Dates: start: 20040808, end: 20040818
  2. LONGES [Concomitant]
     Dosage: 5 MG/DAY
     Route: 048
  3. LASIX [Concomitant]
     Dosage: 10 MG, UNK
  4. ALDACTAZIDE-A [Concomitant]
     Dosage: 12.5 MG, UNK
     Route: 048
  5. ZYLORIC [Concomitant]
     Dosage: 100 MG, UNK
     Route: 048

REACTIONS (2)
  - HAEMOGLOBIN DECREASED [None]
  - PLATELET COUNT DECREASED [None]
